FAERS Safety Report 4624170-5 (Version None)
Quarter: 2005Q1

REPORT INFORMATION
  Report Type: 
  Country: None (occurrence: None)
  Receive Date: 20050331
  Receipt Date: 20050318
  Transmission Date: 20050727
  Serious: Yes (Hospitalization)
  Sender: FDA-Public Use
  Company Number: FR-GLAXOSMITHKLINE-B0375321A

PATIENT
  Age: 27 Year
  Sex: Male

DRUGS (4)
  1. DEROXAT [Suspect]
     Dosage: 20MG PER DAY
     Route: 048
     Dates: start: 20041222, end: 20050102
  2. ANAFRANIL [Suspect]
     Indication: HEADACHE
     Dosage: 2UNIT PER DAY
     Route: 048
     Dates: start: 20041126, end: 20041221
  3. DI ANTALVIC [Concomitant]
     Indication: HEADACHE
     Dosage: 2UNIT THREE TIMES PER DAY
     Route: 048
     Dates: start: 20041126
  4. RIVOTRIL [Concomitant]
     Indication: HEADACHE
     Dosage: 2MG PER DAY
     Route: 048

REACTIONS (1)
  - URINARY RETENTION [None]
